FAERS Safety Report 5693887-6 (Version None)
Quarter: 2008Q2

REPORT INFORMATION
  Report Type: 
  Country: None (occurrence: None)
  Receive Date: 20080403
  Receipt Date: 20080324
  Transmission Date: 20081010
  Serious: Yes (Death, Other)
  Sender: FDA-Public Use
  Company Number: JP-PFIZER INC-2008019247

PATIENT
  Age: 63 Year
  Sex: Female

DRUGS (2)
  1. GABAPEN [Suspect]
     Indication: PAIN MANAGEMENT
     Dosage: DAILY DOSE:1200MG
     Route: 048
  2. DOGMATYL [Suspect]

REACTIONS (2)
  - BLOOD POTASSIUM INCREASED [None]
  - DEATH [None]
